FAERS Safety Report 16853599 (Version 1)
Quarter: 2019Q3

REPORT INFORMATION
  Report Type: Spontaneous
  Country: ES (occurrence: ES)
  Receive Date: 20190926
  Receipt Date: 20190926
  Transmission Date: 20191005
  Serious: Yes (Other)
  Sender: FDA-Public Use
  Company Number: ES-AUROBINDO-AUR-APL-2019-061616

PATIENT
  Age: 87 Year
  Sex: Male

DRUGS (1)
  1. CEFUROXIME 500MG [Suspect]
     Active Substance: CEFUROXIME
     Indication: URINARY TRACT INFECTION
     Dosage: UNK, COMP A-DECE
     Route: 048
     Dates: start: 20190824, end: 20190902

REACTIONS (2)
  - Psychomotor hyperactivity [Recovering/Resolving]
  - Delirium [Recovering/Resolving]

NARRATIVE: CASE EVENT DATE: 20190901
